FAERS Safety Report 6273298-5 (Version None)
Quarter: 2009Q3

REPORT INFORMATION
  Report Type: 
  Country: None (occurrence: None)
  Receive Date: 20090720
  Receipt Date: 20090706
  Transmission Date: 20100115
  Serious: Yes (Hospitalization)
  Sender: FDA-Public Use
  Company Number: US-ROCHE-642290

PATIENT
  Sex: Female
  Weight: 73.9 kg

DRUGS (10)
  1. PEG-INTERFERON ALFA 2A (RO 25-8310) [Suspect]
     Indication: HEPATITIS C
     Route: 058
     Dates: start: 20081023, end: 20090430
  2. RIBAVIRIN [Suspect]
     Indication: HEPATITIS C
     Route: 048
     Dates: start: 20081023, end: 20081224
  3. RIBAVIRIN [Suspect]
     Route: 048
     Dates: start: 20081224, end: 20090120
  4. RIBAVIRIN [Suspect]
     Route: 048
     Dates: start: 20090413, end: 20090509
  5. POLYMERASE INHIBITOR OR PLACEBO [Suspect]
     Indication: HEPATITIS C
     Dosage: FREQUENCY: TWICE DAILY (BID) EVERY DAY FROM 23OCT 2008 TO 20NOV2008
     Route: 048
     Dates: start: 20081023, end: 20081120
  6. LITHIUM [Concomitant]
     Dates: start: 19930101
  7. ATIVAN [Concomitant]
     Dates: start: 20081023
  8. TRAZODONE [Concomitant]
     Dates: start: 20081122
  9. BUSPAR [Concomitant]
     Dates: start: 20090122
  10. SEROQUEL [Concomitant]
     Dates: start: 20090423

REACTIONS (2)
  - CONFUSIONAL STATE [None]
  - GAIT DISTURBANCE [None]
